FAERS Safety Report 4947658-6 (Version None)
Quarter: 2006Q1

REPORT INFORMATION
  Report Type: 
  Country: None (occurrence: None)
  Receive Date: 20060320
  Receipt Date: 20060308
  Transmission Date: 20060701
  Serious: Yes (Hospitalization, Other)
  Sender: FDA-Public Use
  Company Number: US-BRISTOL-MYERS SQUIBB COMPANY-13308036

PATIENT
  Sex: Female

DRUGS (2)
  1. COUMADIN [Suspect]
     Indication: PROPHYLAXIS
     Dates: end: 20060201
  2. TEMODAR [Suspect]
     Indication: GLIOBLASTOMA
     Route: 048
     Dates: end: 20060201

REACTIONS (5)
  - DEEP VEIN THROMBOSIS [None]
  - FALL [None]
  - PANCYTOPENIA [None]
  - PULMONARY EMBOLISM [None]
  - SUBARACHNOID HAEMORRHAGE [None]
